FAERS Safety Report 22145432 (Version 3)
Quarter: 2023Q2

REPORT INFORMATION
  Report Type: Spontaneous
  Country: US (occurrence: US)
  Receive Date: 20230328
  Receipt Date: 20230523
  Transmission Date: 20230722
  Serious: No
  Sender: FDA-Public Use
  Company Number: US-BRISTOL-MYERS SQUIBB COMPANY-2023-044171

PATIENT
  Age: 66 Year
  Sex: Female

DRUGS (6)
  1. SOTYKTU [Suspect]
     Active Substance: DEUCRAVACITINIB
     Indication: Psoriasis
     Route: 048
     Dates: start: 202302
  2. CLOBETASOL [Concomitant]
     Active Substance: CLOBETASOL
     Indication: Psoriasis
     Route: 061
     Dates: start: 202110
  3. DEVICE [Concomitant]
     Active Substance: DEVICE
     Indication: Psoriasis
     Route: 061
     Dates: start: 202110
  4. LOSARTAN [Concomitant]
     Active Substance: LOSARTAN
     Indication: Hypertension
     Route: 048
  5. ROSUVASTATIN [Concomitant]
     Active Substance: ROSUVASTATIN
     Indication: Blood cholesterol
     Route: 048
  6. SERTRALINE [Concomitant]
     Active Substance: SERTRALINE HYDROCHLORIDE
     Indication: Anxiety
     Route: 048

REACTIONS (4)
  - Erythema [Unknown]
  - Pruritus [Unknown]
  - Rosacea [Unknown]
  - Drug ineffective [Unknown]
